FAERS Safety Report 23712295 (Version 5)
Quarter: 2024Q3

REPORT INFORMATION
  Report Type: Spontaneous
  Country: ES (occurrence: ES)
  Receive Date: 20240405
  Receipt Date: 20240812
  Transmission Date: 20241016
  Serious: Yes (Death, Other)
  Sender: ADC THERAPEUTICS
  Company Number: ES-BIOVITRUM-2024-ES-004926

PATIENT
  Age: 80 Year
  Sex: Male

DRUGS (3)
  1. ZYNLONTA [Suspect]
     Active Substance: LONCASTUXIMAB TESIRINE-LPYL
     Indication: Diffuse large B-cell lymphoma
     Dosage: UNK
     Dates: start: 20240129, end: 20240129
  2. ZYNLONTA [Suspect]
     Active Substance: LONCASTUXIMAB TESIRINE-LPYL
     Dosage: UNK
     Dates: start: 20240219, end: 20240219
  3. ZYNLONTA [Suspect]
     Active Substance: LONCASTUXIMAB TESIRINE-LPYL
     Dosage: UNK
     Dates: start: 20240318, end: 20240318

REACTIONS (8)
  - Sepsis [Fatal]
  - Hypoxia [Unknown]
  - Depressed level of consciousness [Unknown]
  - Renal impairment [Unknown]
  - Ileus paralytic [Unknown]
  - Pleural effusion [Unknown]
  - Hypotension [Unknown]
  - Abdominal distension [Unknown]

NARRATIVE: CASE EVENT DATE: 20240323
